FAERS Safety Report 6972919-9 (Version None)
Quarter: 2010Q3

REPORT INFORMATION
  Report Type: 
  Country: None (occurrence: None)
  Receive Date: 20100907
  Receipt Date: 20100827
  Transmission Date: 20110219
  Serious: Yes (Hospitalization, Other)
  Sender: FDA-Public Use
  Company Number: 2010SP002316

PATIENT
  Age: 50 Year
  Sex: Female
  Weight: 65 kg

DRUGS (9)
  1. CICLESONIDE HFA (160 UG) [Suspect]
     Indication: RHINITIS PERENNIAL
     Dosage: 160 UG; INHALATION
     Dates: start: 20100513
  2. IMMUNOSUPPRESSIVE AGENTS (CON.) [Concomitant]
  3. CALCIUM (CON.) [Concomitant]
  4. VITAMIN E /00110501/ [Concomitant]
  5. IBUPROFEN (CON.) [Concomitant]
  6. TYLENOL (CON.) /00020001/ [Concomitant]
  7. CYCLOBENZAPRINE 9CON.) [Concomitant]
  8. CLARITIN (PREV.) /00917501/ [Concomitant]
  9. HORMONES AND RELATED AGENTS (PREV.) [Concomitant]

REACTIONS (6)
  - CERVICITIS [None]
  - ENDOMETRIAL HYPERPLASIA [None]
  - MENORRHAGIA [None]
  - PRECANCEROUS CELLS PRESENT [None]
  - UTERINE CERVICAL SQUAMOUS METAPLASIA [None]
  - UTERINE POLYP [None]
